FAERS Safety Report 17467373 (Version 2)
Quarter: 2020Q2

REPORT INFORMATION
  Report Type: Spontaneous
  Country: US (occurrence: US)
  Receive Date: 20200227
  Receipt Date: 20200508
  Transmission Date: 20200713
  Serious: No
  Sender: FDA-Public Use
  Company Number: US-PFIZER INC-2020087052

PATIENT
  Age: 59 Year
  Sex: Female
  Weight: 62.13 kg

DRUGS (3)
  1. IBRANCE [Suspect]
     Active Substance: PALBOCICLIB
     Dosage: 125 MG, CYCLIC (ONCE DAILY FOR 21 DAYS ON 7 DAYS OFF)
     Route: 048
     Dates: start: 20200104
  2. XGEVA [Concomitant]
     Active Substance: DENOSUMAB
     Dosage: 120 MG
  3. IBRANCE [Suspect]
     Active Substance: PALBOCICLIB
     Indication: BREAST CANCER FEMALE
     Dosage: 125 MG, CYCLIC (ONCE DAILY FOR 21 DAYS ON 7 DAYS OFF)
     Route: 048
     Dates: start: 20200104

REACTIONS (2)
  - White blood cell count decreased [Unknown]
  - Decreased appetite [Unknown]
